FAERS Safety Report 5304250-1 (Version None)
Quarter: 2007Q2

REPORT INFORMATION
  Report Type: 
  Country: None (occurrence: None)
  Receive Date: 20070419
  Receipt Date: 20070419
  Transmission Date: 20071010
  Serious: Yes (Hospitalization)
  Sender: FDA-Public Use
  Company Number: None

PATIENT
  Sex: Female
  Weight: 14.8 kg

DRUGS (1)
  1. TREPOSTINAL [Suspect]
     Indication: PULMONARY HYPERTENSION
     Dosage: 19 NANOGRAMS   PER MINUTE   IV DRIP
     Route: 041

REACTIONS (3)
  - ALPHA HAEMOLYTIC STREPTOCOCCAL INFECTION [None]
  - CENTRAL LINE INFECTION [None]
  - KLEBSIELLA INFECTION [None]
